FAERS Safety Report 5736176-3 (Version None)
Quarter: 2008Q2

REPORT INFORMATION
  Report Type: 
  Country: None (occurrence: None)
  Receive Date: 20080508
  Receipt Date: 20080501
  Transmission Date: 20081010
  Serious: Yes (Hospitalization)
  Sender: FDA-Public Use
  Company Number: 2008-02778

PATIENT
  Age: 45 Year
  Sex: Male

DRUGS (1)
  1. TRIAMCINOLONE DIACETATE [Suspect]
     Indication: NECK PAIN
     Dosage: 40  MG  IN 1.5ML SALINE, INTRACERVICAL
     Route: 019
     Dates: start: 20080101, end: 20080101

REACTIONS (4)
  - HYPOAESTHESIA [None]
  - MONOPLEGIA [None]
  - PARAESTHESIA [None]
  - SENSORY LOSS [None]
